FAERS Safety Report 5816469-1 (Version None)
Quarter: 2008Q3

REPORT INFORMATION
  Report Type: 
  Country: None (occurrence: None)
  Receive Date: 20080721
  Receipt Date: 20080709
  Transmission Date: 20090109
  Serious: Yes (Disabling, Other)
  Sender: FDA-Public Use
  Company Number: ES-MERCK-0807ESP00014

PATIENT
  Age: 33 Year
  Sex: Female

DRUGS (6)
  1. MAXALT [Suspect]
     Indication: MIGRAINE
     Route: 048
     Dates: start: 20050101, end: 20080505
  2. IBUPROFEN [Suspect]
     Indication: HEADACHE
     Route: 048
     Dates: end: 20080505
  3. NAPROXEN [Suspect]
     Indication: HEADACHE
     Route: 048
     Dates: end: 20080505
  4. XUMADOL [Suspect]
     Indication: HEADACHE
     Route: 048
  5. PAROXETINE [Concomitant]
     Indication: DEPRESSION
     Route: 048
  6. CLOTIAZEPAM [Concomitant]
     Indication: ANXIETY
     Route: 048

REACTIONS (2)
  - DRUG ABUSE [None]
  - HEADACHE [None]
